FAERS Safety Report 20393838 (Version 2)
Quarter: 2022Q1

REPORT INFORMATION
  Report Type: Spontaneous
  Country: US (occurrence: US)
  Receive Date: 20220128
  Receipt Date: 20220208
  Transmission Date: 20220424
  Serious: Yes (Hospitalization)
  Sender: FDA-Public Use
  Company Number: US-AUROBINDO-AUR-APL-2022-002128

PATIENT
  Age: 3 Year
  Sex: Male

DRUGS (13)
  1. CYCLOPHOSPHAMIDE [Suspect]
     Active Substance: CYCLOPHOSPHAMIDE
     Indication: Product used for unknown indication
     Dosage: 29 MILLIGRAM/KILOGRAM (DAYS -6 AND -5)
     Route: 065
  2. CYCLOPHOSPHAMIDE [Suspect]
     Active Substance: CYCLOPHOSPHAMIDE
     Dosage: 100 MILLIGRAM/KILOGRAM (DAY +3 AND +4)
     Route: 065
  3. FLUDARABINE [Suspect]
     Active Substance: FLUDARABINE PHOSPHATE
     Indication: Product used for unknown indication
     Dosage: 150 MILLIGRAM/SQ. METER (DAYS -6 TO -2)
     Route: 065
  4. FOSCARNET [Suspect]
     Active Substance: FOSCARNET
     Indication: Cytomegalovirus infection
     Dosage: UNK
     Route: 065
  5. HYDROXYUREA [Suspect]
     Active Substance: HYDROXYUREA
     Indication: Product used for unknown indication
     Dosage: 30 MILLIGRAM/KILOGRAM (DAY -70 TO -10)
     Route: 065
  6. LETERMOVIR [Suspect]
     Active Substance: LETERMOVIR
     Indication: Cytomegalovirus infection
     Dosage: UNK
     Route: 065
  7. LETERMOVIR [Suspect]
     Active Substance: LETERMOVIR
     Indication: Parainfluenzae virus infection
  8. MYCOPHENOLATE MOFETIL [Suspect]
     Active Substance: MYCOPHENOLATE MOFETIL
     Indication: Graft versus host disease
     Dosage: UNK (STARTING ON DAY +5 AFTER TRANSPLANT)
     Route: 065
  9. THYMOGLOBULIN [Suspect]
     Active Substance: LAPINE T-LYMPHOCYTE IMMUNE GLOBULIN
     Indication: Product used for unknown indication
     Dosage: 4.5 MILLIGRAM/KILOGRAM (DAYS -9 TO -7)
     Route: 065
  10. THIOTEPA [Suspect]
     Active Substance: THIOTEPA
     Indication: Product used for unknown indication
     Dosage: 10 MILLIGRAM/KILOGRAM (DAYS -9 TO -7)
     Route: 065
  11. SIROLIMUS [Suspect]
     Active Substance: SIROLIMUS
     Indication: Graft versus host disease
     Dosage: UNK
     Route: 065
  12. HYDROXYUREA [Concomitant]
     Active Substance: HYDROXYUREA
     Indication: Product used for unknown indication
     Route: 065
  13. ACYCLOVIR [Concomitant]
     Active Substance: ACYCLOVIR
     Indication: Product used for unknown indication
     Route: 065

REACTIONS (2)
  - Treatment failure [Unknown]
  - Medication error [Unknown]
